FAERS Safety Report 7842050-9 (Version None)
Quarter: 2011Q4

REPORT INFORMATION
  Report Type: 
  Country: None (occurrence: None)
  Receive Date: 20111025
  Receipt Date: 20111021
  Transmission Date: 20120403
  Serious: Yes (Death, Life-Threatening, Other)
  Sender: FDA-Public Use
  Company Number: PHHY2011JP91770

PATIENT
  Age: 66 Year
  Sex: Male

DRUGS (3)
  1. ZOMETA [Suspect]
     Indication: METASTASES TO BONE
     Dosage: 4 MG, (PER ADMINISTRATION)
     Route: 041
     Dates: start: 20111012, end: 20111012
  2. FLURBIPROFEN [Concomitant]
     Dosage: 50 MG, UNK
     Route: 041
     Dates: start: 20111012, end: 20111012
  3. MORPHINE [Concomitant]
     Dosage: 4 MG, UNK
     Dates: start: 20111012

REACTIONS (4)
  - NEOPLASM PROGRESSION [None]
  - BLOOD ALKALINE PHOSPHATASE INCREASED [None]
  - NEOPLASM MALIGNANT [None]
  - DEPRESSED LEVEL OF CONSCIOUSNESS [None]
